FAERS Safety Report 5584190-3 (Version None)
Quarter: 2008Q1

REPORT INFORMATION
  Report Type: 
  Country: None (occurrence: None)
  Receive Date: 20080103
  Receipt Date: 20071219
  Transmission Date: 20080703
  Serious: Yes (Hospitalization, Other)
  Sender: FDA-Public Use
  Company Number: 019972

PATIENT
  Age: 30 Year
  Sex: Male
  Weight: 74.8 kg

DRUGS (9)
  1. ADDERALL 10 [Suspect]
     Indication: DRUG WITHDRAWAL SYNDROME
     Dates: start: 20070201
  2. ACTIQ [Suspect]
     Indication: ABDOMINAL PAIN
     Dosage: 600 UG, Q3HR, BUCCAL : 600 UG, TID, BUCCAL
     Route: 002
     Dates: start: 20040101
  3. ACTIQ [Suspect]
     Indication: PROCTALGIA
     Dosage: 600 UG, Q3HR, BUCCAL : 600 UG, TID, BUCCAL
     Route: 002
     Dates: start: 20040101
  4. CYMBALTA [Suspect]
     Indication: DEPRESSION
     Dosage: 20 MG, QD, ORAL
     Route: 048
     Dates: start: 20040101
  5. FENTANYL [Suspect]
     Indication: ABDOMINAL PAIN
     Dosage: 125 UG, Q1HR, TRANSDERMAL : 25 UG, Q1HR, TRANSDERMAL : 75 UG, Q1HR, TRANSDERMAL
     Route: 062
     Dates: start: 20040101
  6. FENTANYL [Suspect]
     Indication: PROCTALGIA
     Dosage: 125 UG, Q1HR, TRANSDERMAL : 25 UG, Q1HR, TRANSDERMAL : 75 UG, Q1HR, TRANSDERMAL
     Route: 062
     Dates: start: 20040101
  7. DEPAKOTE [Concomitant]
  8. GEODON [Concomitant]
  9. VALIUM [Concomitant]

REACTIONS (10)
  - CONVULSION [None]
  - DRUG DEPENDENCE [None]
  - DRUG WITHDRAWAL SYNDROME [None]
  - HEADACHE [None]
  - IMPAIRED SELF-CARE [None]
  - INSOMNIA [None]
  - MOBILITY DECREASED [None]
  - NAUSEA [None]
  - ORAL INTAKE REDUCED [None]
  - VOMITING [None]
